FAERS Safety Report 9267807 (Version 2)
Quarter: 2014Q1

REPORT INFORMATION
  Report Type: Report from Study
  Country: US (occurrence: US)
  Receive Date: 20130502
  Receipt Date: 20140321
  Transmission Date: 20141002
  Serious: Yes (Hospitalization, Other)
  Sender: FDA-Public Use
  Company Number: US-ALEXION-A201201077

PATIENT
  Age: 38 Year
  Sex: Female

DRUGS (8)
  1. SOLIRIS [Suspect]
     Indication: PAROXYSMAL NOCTURNAL HAEMOGLOBINURIA
     Dosage: 900 MG, Q2W
     Route: 042
  2. METFORMIN [Concomitant]
     Dosage: UNK
  3. ZOFRAN [Concomitant]
     Dosage: UNK
  4. VITAMIN D [Concomitant]
     Dosage: UNK
  5. FOLIC ACID [Concomitant]
     Dosage: UNK
  6. CELEXA [Concomitant]
     Dosage: UNK
  7. TYLENOL [Concomitant]
     Dosage: UNK
  8. ACYCLOVIR [Concomitant]
     Dosage: UNK

REACTIONS (5)
  - Pulmonary embolism [Unknown]
  - Dyspnoea [Unknown]
  - Pain [Unknown]
  - Transfusion [Unknown]
  - Pain in extremity [Unknown]
